FAERS Safety Report 4915027-0 (Version None)
Quarter: 2006Q1

REPORT INFORMATION
  Report Type: 
  Country: None (occurrence: None)
  Receive Date: 20060217
  Receipt Date: 20060209
  Transmission Date: 20060701
  Serious: Yes (Other)
  Sender: FDA-Public Use
  Company Number: PHEH2006US01991

PATIENT
  Sex: Male
  Weight: 102.95 kg

DRUGS (2)
  1. ZOMETA [Suspect]
     Indication: MULTIPLE MYELOMA
     Dosage: 4 MG, Q4WKS
     Dates: start: 20051012, end: 20051219
  2. DEXAMETHASONE [Concomitant]
     Dates: start: 20051109

REACTIONS (8)
  - BLOOD TESTOSTERONE DECREASED [None]
  - BLOOD THYROID STIMULATING HORMONE DECREASED [None]
  - DEHYDROEPIANDROSTERONE DECREASED [None]
  - LOW DENSITY LIPOPROTEIN INCREASED [None]
  - MENOPAUSAL SYMPTOMS [None]
  - MYALGIA [None]
  - NEUROPATHY [None]
  - PAIN [None]
